FAERS Safety Report 18991503 (Version 1)
Quarter: 2021Q1

REPORT INFORMATION
  Report Type: Spontaneous
  Country: US (occurrence: US)
  Receive Date: 20210310
  Receipt Date: 20210310
  Transmission Date: 20210420
  Serious: No
  Sender: FDA-Public Use
  Company Number: US-TEVA-2021-US-1878892

PATIENT
  Age: 51 Year
  Sex: Female

DRUGS (1)
  1. AJOVY [Suspect]
     Active Substance: FREMANEZUMAB-VFRM
     Indication: MIGRAINE
     Dosage: MONTHLY
     Route: 065
     Dates: start: 202012, end: 20210208

REACTIONS (3)
  - Rash [Recovered/Resolved]
  - Contusion [Unknown]
  - Pruritus [Unknown]

NARRATIVE: CASE EVENT DATE: 202101
